FAERS Safety Report 5951350-9 (Version None)
Quarter: 2008Q4

REPORT INFORMATION
  Report Type: 
  Country: None (occurrence: None)
  Receive Date: 20081111
  Receipt Date: 20081111
  Transmission Date: 20090506
  Serious: Yes (Disabling, Other)
  Sender: FDA-Public Use
  Company Number: None

PATIENT
  Age: 51 Year
  Sex: Female
  Weight: 56.6996 kg

DRUGS (2)
  1. SPIRIVA [Suspect]
     Indication: EMPHYSEMA
     Dosage: 1 CAPSULE ONCE/DAILY INHAL
     Route: 055
     Dates: start: 20040601, end: 20081031
  2. ATROVENT [Concomitant]

REACTIONS (1)
  - HEART RATE INCREASED [None]
